FAERS Safety Report 23045562 (Version 3)
Quarter: 2023Q4

REPORT INFORMATION
  Report Type: Spontaneous
  Country: US (occurrence: US)
  Receive Date: 20231009
  Receipt Date: 20231114
  Transmission Date: 20240110
  Serious: No
  Sender: FDA-Public Use
  Company Number: US-SA-SAC20231003001874

PATIENT
  Age: 66 Year
  Sex: Female
  Weight: 56.24 kg

DRUGS (6)
  1. DUPIXENT [Suspect]
     Active Substance: DUPILUMAB
     Indication: Dermatitis atopic
     Dosage: 300 MG, QOW
     Route: 058
     Dates: start: 2018
  2. ESTRADIOL [Concomitant]
     Active Substance: ESTRADIOL
  3. PROGESTERONE [Concomitant]
     Active Substance: PROGESTERONE
  4. ELIQUIS [Concomitant]
     Active Substance: APIXABAN
  5. CASTOR OIL [Concomitant]
     Active Substance: CASTOR OIL
  6. CORTISONE [Concomitant]
     Active Substance: CORTISONE

REACTIONS (6)
  - Rash erythematous [Not Recovered/Not Resolved]
  - Exfoliative rash [Not Recovered/Not Resolved]
  - SARS-CoV-2 test positive [Unknown]
  - Dermatitis atopic [Not Recovered/Not Resolved]
  - Dermatitis allergic [Unknown]
  - Rash papular [Unknown]

NARRATIVE: CASE EVENT DATE: 20231020
